FAERS Safety Report 7395474-0 (Version None)
Quarter: 2011Q1

REPORT INFORMATION
  Report Type: 
  Country: None (occurrence: None)
  Receive Date: 20110325
  Receipt Date: 20110317
  Transmission Date: 20110831
  Serious: Yes (Hospitalization)
  Sender: FDA-Public Use
  Company Number: LEO-2011-00262

PATIENT
  Age: 50 Year
  Sex: Male

DRUGS (1)
  1. INNOHEP [Suspect]
     Indication: VARICOSE VEIN OPERATION
     Dosage: (3500 IU), SUBCUTANEOUS
     Route: 058

REACTIONS (1)
  - PULMONARY EMBOLISM [None]
